FAERS Safety Report 6433807-X (Version None)
Quarter: 2009Q4

REPORT INFORMATION
  Report Type: 
  Country: None (occurrence: None)
  Receive Date: 20091106
  Receipt Date: 20091106
  Transmission Date: 20100525
  Serious: Yes (Hospitalization)
  Sender: FDA-Public Use
  Company Number: None

PATIENT
  Age: 26 Year

DRUGS (4)
  1. NAPROXEN [Suspect]
     Indication: HEADACHE
     Dosage: 500 MG BID PO
     Route: 048
     Dates: start: 20081110, end: 20081121
  2. NAPROXEN [Suspect]
     Indication: PAIN
     Dosage: 500 MG BID PO
     Route: 048
     Dates: start: 20081110, end: 20081121
  3. IBUPROFEN [Suspect]
     Indication: HEADACHE
     Dosage: 600 MG QID PO
     Route: 048
     Dates: start: 20081103, end: 20081110
  4. IBUPROFEN [Suspect]
     Indication: PAIN
     Dosage: 600 MG QID PO
     Route: 048
     Dates: start: 20081103, end: 20081110

REACTIONS (1)
  - GASTRIC HAEMORRHAGE [None]
